FAERS Safety Report 14775599 (Version 1)
Quarter: 2018Q2

REPORT INFORMATION
  Report Type: Spontaneous
  Country: US (occurrence: US)
  Receive Date: 20180412
  Receipt Date: 20180412
  Transmission Date: 20180711
  Serious: Yes (Other)
  Sender: FDA-Public Use
  Company Number: None

PATIENT
  Age: 43 Year
  Sex: Female
  Weight: 130 kg

DRUGS (3)
  1. CLENPIQ [Suspect]
     Active Substance: ANHYDROUS CITRIC ACID\MAGNESIUM OXIDE\SODIUM PICOSULFATE
     Indication: COLONOSCOPY
     Dosage: PO 2 BOTTLES; 2 DIFFERENT DAYS?
     Route: 048
     Dates: start: 20180410, end: 20180410
  2. PANTOPRAZOLE [Concomitant]
     Active Substance: PANTOPRAZOLE
  3. FLUOXETINE [Concomitant]
     Active Substance: FLUOXETINE HYDROCHLORIDE

REACTIONS (6)
  - Frequent bowel movements [None]
  - Anal incontinence [None]
  - Vomiting [None]
  - Nausea [None]
  - Palpitations [None]
  - Loss of consciousness [None]

NARRATIVE: CASE EVENT DATE: 20180410
